FAERS Safety Report 9982144 (Version 2)
Quarter: 2014Q1

REPORT INFORMATION
  Report Type: Spontaneous
  Country: US (occurrence: US)
  Receive Date: 20140307
  Receipt Date: 20140307
  Transmission Date: 20141002
  Serious: Yes (Hospitalization)
  Sender: FDA-Public Use
  Company Number: US-ABBVIE-13P-163-1149217-00

PATIENT
  Age: 70 Year
  Sex: Female
  Weight: 54.48 kg

DRUGS (4)
  1. HUMIRA [Suspect]
     Indication: PSORIASIS
     Route: 058
     Dates: start: 2008, end: 201309
  2. HUMIRA [Suspect]
     Indication: PSORIASIS
  3. KENALOG [Concomitant]
     Indication: PRODUCT USED FOR UNKNOWN INDICATION
     Route: 030
     Dates: start: 20121217, end: 20121217
  4. KENALOG [Concomitant]
     Route: 030
     Dates: start: 20130619, end: 20130619

REACTIONS (1)
  - Pneumonia legionella [Recovering/Resolving]
